FAERS Safety Report 8582042-8 (Version None)
Quarter: 2012Q3

REPORT INFORMATION
  Report Type: 
  Country: None (occurrence: None)
  Receive Date: 20120809
  Receipt Date: 20120801
  Transmission Date: 20120928
  Serious: Yes (Other)
  Sender: FDA-Public Use
  Company Number: BR-PFIZER INC-2012187996

PATIENT
  Age: 59 Year
  Sex: Female
  Weight: 67 kg

DRUGS (3)
  1. HYDROCHLOROTHIAZIDE [Concomitant]
     Indication: BLOOD PRESSURE INCREASED
     Dosage: UNK
     Dates: end: 20120729
  2. CELEBREX [Suspect]
     Indication: BURSITIS
     Dosage: UNK, 1X/DAY
     Route: 048
     Dates: start: 20120701, end: 20120701
  3. METHYLDOPA [Concomitant]
     Indication: BLOOD PRESSURE INCREASED
     Dosage: UNK

REACTIONS (8)
  - PERIPHERAL COLDNESS [None]
  - ANGIOPATHY [None]
  - SKIN DISCOLOURATION [None]
  - PYREXIA [None]
  - MUSCLE SPASMS [None]
  - RHINITIS [None]
  - SINUSITIS [None]
  - FATIGUE [None]
